FAERS Safety Report 16169023 (Version 1)
Quarter: 2019Q2

REPORT INFORMATION
  Report Type: Spontaneous
  Country: US (occurrence: US)
  Receive Date: 20190405
  Receipt Date: 20190405
  Transmission Date: 20190711
  Serious: Yes (Other)
  Sender: FDA-Public Use
  Company Number: None

PATIENT
  Age: 41 Year
  Sex: Female
  Weight: 94.95 kg

DRUGS (2)
  1. MAXIMUM STRENGTH HEMP EXTRACT OIL, 60MG/SERVING [Suspect]
     Active Substance: CANNABIDIOL\CANNABIS SATIVA SEED OIL
     Indication: MYALGIA
     Dosage: ?          QUANTITY:1 FULL DROPPER;OTHER FREQUENCY:2-3 TIMES PER DAY;?
     Route: 060
     Dates: start: 20181001, end: 20190311
  2. MAXIMUM STRENGTH HEMP EXTRACT OIL, 60MG/SERVING [Suspect]
     Active Substance: CANNABIDIOL\CANNABIS SATIVA SEED OIL
     Indication: ANXIETY
     Dosage: ?          QUANTITY:1 FULL DROPPER;OTHER FREQUENCY:2-3 TIMES PER DAY;?
     Route: 060
     Dates: start: 20181001, end: 20190311

REACTIONS (3)
  - Product use issue [None]
  - Feeling abnormal [None]
  - Product formulation issue [None]

NARRATIVE: CASE EVENT DATE: 20190311
